FAERS Safety Report 5538302-8 (Version None)
Quarter: 2007Q4

REPORT INFORMATION
  Report Type: 
  Country: None (occurrence: None)
  Receive Date: 20071123
  Receipt Date: 20070725
  Transmission Date: 20080405
  Serious: Yes (Other)
  Sender: FDA-Public Use
  Company Number: US-JNJFOC-20070500832

PATIENT
  Age: 60 Year
  Sex: Female
  Weight: 67.1324 kg

DRUGS (5)
  1. LEVAQUIN [Suspect]
     Indication: CYSTITIS
     Dosage: 500 G, ORAL
     Route: 048
     Dates: start: 20061226, end: 20070104
  2. LEVAQUIN [Suspect]
     Indication: SINUSITIS
     Dosage: 500 G, ORAL
     Route: 048
     Dates: start: 20061226, end: 20070104
  3. HORMONE REPLACEMENT (ANDROGENS AND FEMALE SEX HORMONES IN COMB) [Concomitant]
  4. PROTEIN SUPPLEMENTS (PROTEIN SUPPLEMENTS) [Concomitant]
  5. MULTI-VITAMINS [Concomitant]

REACTIONS (4)
  - MUSCULOSKELETAL PAIN [None]
  - TENDON PAIN [None]
  - TENDON RUPTURE [None]
  - TENDONITIS [None]
